FAERS Safety Report 13557904 (Version 1)
Quarter: 2017Q2

REPORT INFORMATION
  Report Type: Spontaneous
  Country: US (occurrence: US)
  Receive Date: 20170518
  Receipt Date: 20170518
  Transmission Date: 20170830
  Serious: No
  Sender: FDA-Public Use
  Company Number: US-VIIV HEALTHCARE LIMITED-US2017GSK072308

PATIENT
  Sex: Male

DRUGS (1)
  1. TIVICAY [Suspect]
     Active Substance: DOLUTEGRAVIR SODIUM
     Indication: EXPOSURE TO BODY FLUID
     Dosage: UNK

REACTIONS (3)
  - Drug dispensing error [Unknown]
  - Product use in unapproved indication [Unknown]
  - Product use issue [Unknown]
